FAERS Safety Report 5392887-3 (Version None)
Quarter: 2007Q3

REPORT INFORMATION
  Report Type: 
  Country: None (occurrence: None)
  Receive Date: 20070721
  Receipt Date: 20070713
  Transmission Date: 20080115
  Serious: Yes (Other)
  Sender: FDA-Public Use
  Company Number: US-PFIZER INC-2007058116

PATIENT
  Age: 35 Year
  Sex: Female

DRUGS (2)
  1. VIRACEPT [Suspect]
     Indication: ASYMPTOMATIC HIV INFECTION
     Route: 048
  2. COMBIVIR [Suspect]
     Route: 048

REACTIONS (1)
  - ABORTION SPONTANEOUS [None]
